FAERS Safety Report 4769792-6 (Version None)
Quarter: 2005Q3

REPORT INFORMATION
  Report Type: 
  Country: None (occurrence: None)
  Receive Date: 20050913
  Receipt Date: 20050906
  Transmission Date: 20060218
  Serious: Yes (Hospitalization)
  Sender: FDA-Public Use
  Company Number: 2005124466

PATIENT
  Age: 36 Year
  Sex: Female

DRUGS (5)
  1. ZOLOFT [Suspect]
     Indication: POSTPARTUM DEPRESSION
     Dosage: ORAL
     Route: 048
     Dates: start: 20010101
  2. PLASTERS (PLASTERS) [Suspect]
     Indication: ILL-DEFINED DISORDER
     Dosage: TOPICAL
     Route: 061
     Dates: start: 20040101
  3. HERBAL PREPARATION INGREDIENTS (HERBAL PREPARATION INGREDIENTS) [Suspect]
     Indication: OVERWEIGHT
     Dosage: TRANSDERMAL
     Route: 062
     Dates: start: 20050101
  4. JULIET-35 (CYPROTERONE ACETATE, ETHINYLESTRADIOL) [Concomitant]
  5. VITAMIN C (VITAMIN C) [Concomitant]

REACTIONS (2)
  - APPLICATION SITE DERMATITIS [None]
  - RHINOPLASTY [None]
